FAERS Safety Report 7491575-7 (Version None)
Quarter: 2011Q2

REPORT INFORMATION
  Report Type: 
  Country: None (occurrence: None)
  Receive Date: 20110519
  Receipt Date: 20110510
  Transmission Date: 20111010
  Serious: Yes (Other)
  Sender: FDA-Public Use
  Company Number: FR-B.I. PHARMACEUTICALS,INC./RIDGEFIELD-2011-FF-00476FF

PATIENT
  Sex: Female
  Weight: 84 kg

DRUGS (2)
  1. PRADAXA [Suspect]
     Indication: PROSTHESIS IMPLANTATION
  2. PRADAXA [Suspect]
     Indication: THROMBOSIS PROPHYLAXIS
     Dosage: 150 MG
     Route: 048
     Dates: start: 20110309, end: 20110317

REACTIONS (1)
  - DEEP VEIN THROMBOSIS [None]
